FAERS Safety Report 24124953 (Version 2)
Quarter: 2024Q3

REPORT INFORMATION
  Report Type: Spontaneous
  Country: PL (occurrence: PL)
  Receive Date: 20240723
  Receipt Date: 20240909
  Transmission Date: 20241017
  Serious: Yes (Other)
  Sender: MSN LABORATORIES
  Company Number: PL-MLMSERVICE-20240628-PI115450-00117-1

PATIENT

DRUGS (2)
  1. BORTEZOMIB [Suspect]
     Active Substance: BORTEZOMIB
     Indication: Plasmacytoma
     Dosage: 1.3 MG/M2 ON DAYS 1, 4, 8, AND 11 OF A 21-DAY TREATMENT CYCLE (1 CYCLE)
     Route: 058
  2. DEXAMETHASONE [Suspect]
     Active Substance: DEXAMETHASONE
     Indication: Plasmacytoma
     Dosage: DEXAMETHASONE ADMINISTERED AT 20 MG ON THE DAY(1, 4, 8, AND 11 OF A 21-DAY TREATMENT CYCLE)
     Route: 065

REACTIONS (3)
  - Haemorrhage [Unknown]
  - Anaemia [Unknown]
  - Dizziness [Unknown]
